FAERS Safety Report 7737282-4 (Version None)
Quarter: 2011Q3

REPORT INFORMATION
  Report Type: 
  Country: None (occurrence: None)
  Receive Date: 20110908
  Receipt Date: 20110831
  Transmission Date: 20111222
  Serious: Yes (Death, Hospitalization, Other)
  Sender: FDA-Public Use
  Company Number: GB-MILLENNIUM PHARMACEUTICALS, INC.-2011-03997

PATIENT

DRUGS (3)
  1. VELCADE [Suspect]
     Indication: MULTIPLE MYELOMA
     Dosage: 2.5 MG, CYCLIC
     Route: 042
     Dates: start: 20110607, end: 20110709
  2. HEPARIN [Concomitant]
     Indication: PROPHYLAXIS
  3. DEXAMETHASONE [Concomitant]
     Indication: MULTIPLE MYELOMA
     Dosage: 160 MG, MONTHLY
     Dates: start: 20110607, end: 20110709

REACTIONS (6)
  - MULTIPLE MYELOMA [None]
  - PALLOR [None]
  - PLEURAL EFFUSION [None]
  - MEDIASTINAL MASS [None]
  - DYSPNOEA [None]
  - ABDOMINAL PAIN [None]
